FAERS Safety Report 9882993 (Version 1)
Quarter: 2014Q1

REPORT INFORMATION
  Report Type: Spontaneous
  Country: US (occurrence: None)
  Receive Date: 20140205
  Receipt Date: 20140205
  Transmission Date: 20141002
  Serious: Yes (Hospitalization)
  Sender: FDA-Public Use
  Company Number: 2014-01327

PATIENT
  Age: 80 Year
  Sex: Male

DRUGS (8)
  1. IMIQUIMOD [Suspect]
     Indication: ACTINIC KERATOSIS
     Route: 061
     Dates: start: 20131125, end: 20140105
  2. ZYCLARA [Suspect]
     Indication: ACTINIC KERATOSIS
     Route: 061
     Dates: start: 20131125, end: 20140105
  3. ASPIRIN (ACETYLSALICYCLIC ACID) [Concomitant]
  4. CARVEDILOL (CARVEDILOL) [Concomitant]
  5. LISINOPRIL (LISINOPRIL) [Concomitant]
  6. CENTRUM SILVER/01292501/ (ASCORBIC ACID, CALCIUM, MINERALS NOS, RETINOL, TOCOPHERYL ACETATE, VITAMIN B NOS, ZINC) [Concomitant]
  7. ATORVASTATIN (ATORVASTATIN) [Concomitant]
  8. PLACEBO [Suspect]
     Indication: ACTINIC KERATOSIS
     Route: 061
     Dates: start: 20131125, end: 20140105

REACTIONS (4)
  - Dizziness [None]
  - Fatigue [None]
  - Dyspnoea [None]
  - Blood glucose decreased [None]
